FAERS Safety Report 25739481 (Version 2)
Quarter: 2025Q3

REPORT INFORMATION
  Report Type: Spontaneous
  Country: JP (occurrence: JP)
  Receive Date: 20250829
  Receipt Date: 20250911
  Transmission Date: 20251021
  Serious: Yes (Other)
  Sender: BRISTOL-MYERS SQUIBB COMPANY
  Company Number: JP-BRISTOL-MYERS SQUIBB COMPANY-2025-116801

PATIENT
  Age: 38 Year
  Sex: Male

DRUGS (6)
  1. YERVOY [Suspect]
     Active Substance: IPILIMUMAB
     Indication: Malignant melanoma
  2. OPDIVO [Suspect]
     Active Substance: NIVOLUMAB
     Indication: Malignant melanoma
  3. ENCORAFENIB [Concomitant]
     Active Substance: ENCORAFENIB
     Indication: Malignant melanoma
  4. BINIMETINIB [Concomitant]
     Active Substance: BINIMETINIB
     Indication: Malignant melanoma
  5. DABRAFENIB [Concomitant]
     Active Substance: DABRAFENIB
     Indication: Malignant melanoma
  6. TRAMETINIB [Concomitant]
     Active Substance: TRAMETINIB
     Indication: Malignant melanoma

REACTIONS (3)
  - Enteritis [Recovered/Resolved]
  - Colitis ulcerative [Recovered/Resolved]
  - Orbital myositis [Recovered/Resolved]
